FAERS Safety Report 5871699-8 (Version None)
Quarter: 2008Q3

REPORT INFORMATION
  Report Type: 
  Country: None (occurrence: None)
  Receive Date: 20080904
  Receipt Date: 20080904
  Transmission Date: 20090109
  Serious: Yes (Life-Threatening, Hospitalization, Disabling)
  Sender: FDA-Public Use
  Company Number: None

PATIENT
  Age: 22 Year
  Sex: Female
  Weight: 88.4514 kg

DRUGS (1)
  1. MERINA BAYER HEALTHCARE PHARMACEUTICALS [Suspect]
     Indication: CONTRACEPTION
     Dosage: LESS THAN ONE MONTH
     Dates: start: 20080807, end: 20080825

REACTIONS (8)
  - FALL [None]
  - HAEMORRHAGE [None]
  - IMPAIRED DRIVING ABILITY [None]
  - LOSS OF CONSCIOUSNESS [None]
  - NAUSEA [None]
  - PAIN [None]
  - THROMBOSIS [None]
  - UTERINE DISORDER [None]
